FAERS Safety Report 14874215 (Version 1)
Quarter: 2018Q2

REPORT INFORMATION
  Report Type: Spontaneous
  Country: US (occurrence: US)
  Receive Date: 20180510
  Receipt Date: 20180510
  Transmission Date: 20180711
  Serious: No
  Sender: FDA-Public Use
  Company Number: US-GLAXOSMITHKLINE-US2018079484

PATIENT
  Sex: Female

DRUGS (1)
  1. BENLYSTA [Suspect]
     Active Substance: BELIMUMAB
     Indication: PRODUCT USED FOR UNKNOWN INDICATION
     Route: 042

REACTIONS (7)
  - Abdominal discomfort [Unknown]
  - Infusion related reaction [Unknown]
  - Inability to afford medication [Unknown]
  - Incorrect drug administration rate [Unknown]
  - Malaise [Unknown]
  - Defaecation urgency [Unknown]
  - Drug ineffective [Unknown]
